FAERS Safety Report 5038071-4 (Version None)
Quarter: 2006Q2

REPORT INFORMATION
  Report Type: 
  Country: None (occurrence: None)
  Receive Date: 20060601
  Receipt Date: 20060204
  Transmission Date: 20061013
  Serious: No
  Sender: FDA-Public Use
  Company Number: 2006PV008124

PATIENT
  Age: 53 Year
  Sex: Male
  Weight: 86.1834 kg

DRUGS (5)
  1. BYETTA [Suspect]
     Indication: DIABETES MELLITUS NON-INSULIN-DEPENDENT
     Dosage: 5 MCG;BID;SC
     Route: 058
     Dates: start: 20060114
  2. LANTUS [Concomitant]
  3. METFORMIN [Concomitant]
  4. ACTOPLUS MET [Concomitant]
  5. BENICAR [Concomitant]

REACTIONS (2)
  - BLOOD GLUCOSE DECREASED [None]
  - HUNGER [None]
